FAERS Safety Report 23984256 (Version 1)
Quarter: 2024Q2

REPORT INFORMATION
  Report Type: Spontaneous
  Country: US (occurrence: US)
  Receive Date: 20240618
  Receipt Date: 20240618
  Transmission Date: 20240716
  Serious: Yes (Other)
  Sender: FDA-Public Use
  Company Number: US-APOTEX-2024AP007224

PATIENT
  Age: 61 Year
  Sex: Female

DRUGS (2)
  1. TRAZODONE HYDROCHLORIDE [Suspect]
     Active Substance: TRAZODONE HYDROCHLORIDE
     Indication: Product used for unknown indication
     Dosage: UNK, PRN
     Route: 065
  2. DOXYCYCLINE [Concomitant]
     Active Substance: DOXYCYCLINE\DOXYCYCLINE HYCLATE
     Indication: Graft infection
     Dosage: UNK
     Route: 065

REACTIONS (5)
  - Dermatitis bullous [Recovering/Resolving]
  - Skin necrosis [Unknown]
  - Cutaneous vasculitis [Unknown]
  - Extra dose administered [Unknown]
  - Intentional product misuse [Unknown]
